FAERS Safety Report 21072146 (Version 1)
Quarter: 2022Q3

REPORT INFORMATION
  Report Type: Spontaneous
  Country: US (occurrence: US)
  Receive Date: 20220712
  Receipt Date: 20220712
  Transmission Date: 20221027
  Serious: No
  Sender: FDA-Public Use
  Company Number: US-LUNDBECK-DKLU3049970

PATIENT
  Age: 60 Year
  Sex: Male

DRUGS (1)
  1. NORTHERA [Suspect]
     Active Substance: DROXIDOPA
     Indication: Orthostatic hypotension
     Dosage: OVERDOSE: 2700MG DAILY OF NORTHERA
     Route: 048
     Dates: start: 20220323

REACTIONS (1)
  - Prescribed overdose [Unknown]
